FAERS Safety Report 8758476 (Version 2)
Quarter: 2012Q4

REPORT INFORMATION
  Report Type: Spontaneous
  Country: JP (occurrence: None)
  Receive Date: 20120816
  Receipt Date: 20120918
  Transmission Date: 20130627
  Serious: Yes (Other)
  Sender: FDA-Public Use
  Company Number: JP-2012-16007

PATIENT
  Age: 76 Year
  Sex: Female

DRUGS (9)
  1. SAMSCA (TOLVAPTAN) TABLET [Suspect]
     Indication: FLUID RETENTION
     Route: 048
     Dates: start: 20120414, end: 20120415
  2. SAMSCA (TOLVAPTAN) TABLET [Suspect]
     Indication: OFF LABEL USE
     Route: 048
     Dates: start: 20120414, end: 20120415
  3. FUROSEMIDE (FUROSEMIDE) [Concomitant]
  4. CLEITON (HYDROCORTISONE SODIUM PHOSPHATE) INJECTION [Concomitant]
  5. VANCOMYCIN HYDROCHLORIDE (VANCOMYCIN HYDROCHLORIDE) [Concomitant]
  6. CLINDAMYCIN HYDROCHLORIDE (CLINDAMYCIN HYDROCHLORIDE) [Concomitant]
  7. RECOMODULIN (THROMBOMODULIN ALFA) INJECTION [Concomitant]
  8. LASIX (FUROSEMIDE) [Concomitant]
  9. ANTHROBIN P (ANTITHROMBIN III) INJECTION [Concomitant]

REACTIONS (4)
  - Hypernatraemia [None]
  - Thirst [None]
  - Cardiomegaly [None]
  - Pulmonary congestion [None]
